FAERS Safety Report 13264117 (Version 2)
Quarter: 2017Q2

REPORT INFORMATION
  Report Type: Report from Study
  Country: US (occurrence: US)
  Receive Date: 20170223
  Receipt Date: 20170612
  Transmission Date: 20170830
  Serious: No
  Sender: FDA-Public Use
  Company Number: US-009507513-1702USA010201

PATIENT

DRUGS (3)
  1. CYCLOPHOSPHAMIDE. [Suspect]
     Active Substance: CYCLOPHOSPHAMIDE
     Indication: PLASMA CELL MYELOMA
     Dosage: 300 MG/M2, ON DAYS 1, 8, AND 15
     Route: 048
  2. DEXAMETHASONE. [Suspect]
     Active Substance: DEXAMETHASONE
     Indication: PLASMA CELL MYELOMA
     Dosage: 40 MG ON DAYS 1, 8, 15, AND 22; ROUTE: ORALLY OR INTRAVENOUSLY
     Route: 048
  3. CARFILZOMIB [Suspect]
     Active Substance: CARFILZOMIB
     Indication: PLASMA CELL MYELOMA
     Dosage: 56 MG/M2 ON DAYS 1, 2, 8, 9, 15, AND 16 OF EACH 28-DAY CYCLE (20 MG/M2 ON DAYS 1 AND 2 OF CYCLE 1)
     Route: 041

REACTIONS (1)
  - Urinary tract infection [Unknown]
